FAERS Safety Report 6757026-2 (Version None)
Quarter: 2010Q2

REPORT INFORMATION
  Report Type: 
  Country: None (occurrence: None)
  Receive Date: 20100604
  Receipt Date: 20100524
  Transmission Date: 20101027
  Serious: Yes (Other)
  Sender: FDA-Public Use
  Company Number: US-ELI_LILLY_AND_COMPANY-US201005006353

PATIENT
  Age: 54 Year
  Sex: Male
  Weight: 86 kg

DRUGS (3)
  1. STRATTERA [Suspect]
     Indication: ATTENTION DEFICIT/HYPERACTIVITY DISORDER
     Dosage: UNK, UNK
     Dates: start: 20030101, end: 20030701
  2. VIAGRA [Concomitant]
     Dates: start: 20020101
  3. GABAPENTIN [Concomitant]
     Route: 062

REACTIONS (4)
  - ANORGASMIA [None]
  - DISTURBANCE IN SEXUAL AROUSAL [None]
  - EJACULATION DISORDER [None]
  - ERECTILE DYSFUNCTION [None]
